FAERS Safety Report 15430348 (Version 1)
Quarter: 2018Q3

REPORT INFORMATION
  Report Type: Spontaneous
  Country: GB (occurrence: GB)
  Receive Date: 20180926
  Receipt Date: 20180926
  Transmission Date: 20181010
  Serious: Yes (Other)
  Sender: FDA-Public Use
  Company Number: GB-TEVA-2018-GB-958385

PATIENT
  Age: 48 Year
  Sex: Female
  Weight: 92 kg

DRUGS (12)
  1. MICONAZOLE. [Concomitant]
     Active Substance: MICONAZOLE
     Dosage: 4 DOSAGE FORMS DAILY;
     Route: 065
     Dates: start: 20180816, end: 20180821
  2. CYCLIZINE [Concomitant]
     Active Substance: CYCLIZINE
     Indication: NAUSEA
     Route: 065
     Dates: start: 20180806, end: 20180816
  3. NEBIVOLOL. [Concomitant]
     Active Substance: NEBIVOLOL
     Indication: CARDIAC DISORDER
     Dosage: .5 DOSAGE FORMS DAILY;
     Route: 065
     Dates: start: 20171025
  4. CLENIL MODULITE [Concomitant]
     Active Substance: BECLOMETHASONE DIPROPIONATE
     Dosage: 4 DOSAGE FORMS DAILY; AT 08.00 AND 22.00.
     Route: 055
     Dates: start: 20171025
  5. SALBUTAMOL [Concomitant]
     Active Substance: ALBUTEROL
     Dosage: INHALE 2 DOSES AT 08.00 AND 12.00 AND 18.00 AND ...
     Route: 055
     Dates: start: 20171025
  6. PERMETHRIN. [Concomitant]
     Active Substance: PERMETHRIN
     Dosage: APPLY ONCE WEEKLY FOR 2 DOSES AND ELAVE FOR 10 ...
     Route: 065
     Dates: start: 20180719, end: 20180721
  7. TRIMETHOPRIM. [Suspect]
     Active Substance: TRIMETHOPRIM
     Dosage: 400 MILLIGRAM DAILY;
     Route: 065
     Dates: start: 20180806, end: 20180813
  8. CARBOCISTEINE [Concomitant]
     Active Substance: CARBOCYSTEINE
     Indication: DYSPNOEA
     Dosage: 6 DOSAGE FORMS DAILY;
     Route: 065
     Dates: start: 20171025, end: 20180719
  9. LACTULOSE. [Concomitant]
     Active Substance: LACTULOSE
     Dosage: 30 ML DAILY;
     Route: 065
     Dates: start: 20171025, end: 20180719
  10. HYOSCINE BUTYLBROMIDE [Concomitant]
     Active Substance: BUTYLSCOPOLAMINE
     Dosage: TAKE ONE TO TWO  TABLETS UP TO 4 TIMES/DAY, AS NEEDED.
     Route: 065
     Dates: start: 20180608
  11. CHLORPHENAMINE [Concomitant]
     Active Substance: CHLORPHENIRAMINE MALEATE
     Dosage: EVERY SIX HOURS WHEN REQUIRED RELIEF O...
     Route: 065
     Dates: start: 20171025, end: 20180719
  12. PANTOPRAZOLE [Concomitant]
     Active Substance: PANTOPRAZOLE
     Indication: GASTROOESOPHAGEAL REFLUX DISEASE
     Dosage: 1 DOSAGE FORMS DAILY;
     Route: 065
     Dates: start: 20171110

REACTIONS (3)
  - Pharyngeal oedema [Recovered/Resolved]
  - Lip swelling [Recovered/Resolved]
  - Swelling face [Recovered/Resolved]
